FAERS Safety Report 5522387-9 (Version None)
Quarter: 2007Q4

REPORT INFORMATION
  Report Type: 
  Country: None (occurrence: None)
  Receive Date: 20071120
  Receipt Date: 20071108
  Transmission Date: 20080405
  Serious: Yes (Hospitalization)
  Sender: FDA-Public Use
  Company Number: GB-PFIZER INC-2007095891

PATIENT
  Age: 15 Year
  Sex: Female

DRUGS (4)
  1. SERTRALINE [Suspect]
  2. PARACETAMOL [Suspect]
     Route: 048
  3. N-ACETYLCYSTEINE [Suspect]
     Indication: OVERDOSE
     Route: 042
  4. DEXTROSE [Suspect]
     Indication: OVERDOSE
     Route: 042

REACTIONS (3)
  - HYPOKALAEMIA [None]
  - OVERDOSE [None]
  - VOMITING [None]
